FAERS Safety Report 6504180-3 (Version None)
Quarter: 2009Q4

REPORT INFORMATION
  Report Type: 
  Country: None (occurrence: None)
  Receive Date: 20091217
  Receipt Date: 20091208
  Transmission Date: 20100525
  Serious: Yes (Other)
  Sender: FDA-Public Use
  Company Number: BR-ABBOTT-09P-020-0601687-00

PATIENT
  Sex: Female
  Weight: 58 kg

DRUGS (10)
  1. HUMIRA [Suspect]
     Indication: RHEUMATOID ARTHRITIS
     Route: 058
  2. METHOTREXATE [Concomitant]
     Indication: RHEUMATOID ARTHRITIS
     Route: 048
  3. ARAVA [Concomitant]
     Indication: RHEUMATOID ARTHRITIS
     Route: 048
  4. ARADOIS [Concomitant]
     Indication: BLOOD PRESSURE
     Dosage: 50MG/12.5MG
     Route: 048
  5. OMEPRAZOLE [Concomitant]
     Indication: GASTRIC DISORDER
     Route: 048
  6. METICORTEN [Concomitant]
     Indication: RHEUMATOID ARTHRITIS
     Route: 048
     Dates: start: 19830101
  7. DICLOFENAC SODIUM [Concomitant]
     Indication: RHEUMATOID ARTHRITIS
     Route: 048
  8. CALCIUM [Concomitant]
     Indication: OSTEOPOROSIS
     Route: 048
     Dates: end: 20090801
  9. LORAZEPAM [Concomitant]
     Indication: SLEEP DISORDER THERAPY
     Dosage: 2 MG TABLET, TAKES 1/2-TABLET DAILY
     Route: 048
  10. AMITRIPTYLINE [Concomitant]
     Indication: ANTIDEPRESSANT THERAPY
     Dosage: 25 MG TABLET, TAKES 1/2-TABLET DAILY
     Route: 048

REACTIONS (6)
  - ARTHRALGIA [None]
  - BLOOD CHOLESTEROL ABNORMAL [None]
  - DRUG INEFFECTIVE [None]
  - INJECTION SITE NODULE [None]
  - PATHOLOGICAL FRACTURE [None]
  - SENSATION OF HEAVINESS [None]
